FAERS Safety Report 11116868 (Version 2)
Quarter: 2018Q1

REPORT INFORMATION
  Report Type: Spontaneous
  Country: US (occurrence: US)
  Receive Date: 20150515
  Receipt Date: 20180315
  Transmission Date: 20180508
  Serious: Yes (Hospitalization, Other)
  Sender: FDA-Public Use
  Company Number: US-ENDO PHARMACEUTICALS INC.-201501004

PATIENT
  Age: 49 Year
  Sex: Male
  Weight: 113.38 kg

DRUGS (2)
  1. TESTIM [Suspect]
     Active Substance: TESTOSTERONE
     Indication: BLOOD TESTOSTERONE DECREASED
     Dosage: 50 MG, DAILY
     Route: 062
     Dates: start: 20080211, end: 20080410
  2. TESTIM [Suspect]
     Active Substance: TESTOSTERONE
     Dosage: 50 MG, DAILY
     Route: 062
     Dates: start: 20090429, end: 20090701

REACTIONS (5)
  - Cerebrovascular accident [Unknown]
  - Haemorrhagic stroke [Unknown]
  - Suicidal ideation [Unknown]
  - Intentional overdose [Unknown]
  - Deep vein thrombosis [Unknown]

NARRATIVE: CASE EVENT DATE: 20091103
